FAERS Safety Report 15731204 (Version 1)
Quarter: 2018Q4

REPORT INFORMATION
  Report Type: Spontaneous
  Country: GB (occurrence: GB)
  Receive Date: 20181217
  Receipt Date: 20181217
  Transmission Date: 20190205
  Serious: Yes (Disabling)
  Sender: FDA-Public Use
  Company Number: None

PATIENT
  Age: 50 Year
  Sex: Female

DRUGS (7)
  1. FLUOXETINE [Concomitant]
     Active Substance: FLUOXETINE HYDROCHLORIDE
  2. VITAMIN D [Concomitant]
     Active Substance: CHOLECALCIFEROL
  3. BIOFREEZE GEL [Concomitant]
  4. ORAMORPH [Concomitant]
     Active Substance: MORPHINE SULFATE
  5. MAGNESIUM [Concomitant]
     Active Substance: MAGNESIUM
  6. LUPRON DEPOT [Suspect]
     Active Substance: LEUPROLIDE ACETATE
     Indication: PREOPERATIVE CARE
     Route: 030
  7. FOLIC ACID. [Concomitant]
     Active Substance: FOLIC ACID

REACTIONS (12)
  - Pain [None]
  - Anxiety [None]
  - Insomnia [None]
  - Injection site pain [None]
  - Depression [None]
  - Condition aggravated [None]
  - Myalgia [None]
  - Bone pain [None]
  - Asthenia [None]
  - Headache [None]
  - Loss of libido [None]
  - Cognitive disorder [None]

NARRATIVE: CASE EVENT DATE: 20090102
